FAERS Safety Report 9437443 (Version 2)
Quarter: 2013Q3

REPORT INFORMATION
  Report Type: Spontaneous
  Country: JP (occurrence: JP)
  Receive Date: 20130802
  Receipt Date: 20130814
  Transmission Date: 20140515
  Serious: Yes (Life-Threatening, Hospitalization, Other)
  Sender: FDA-Public Use
  Company Number: JP-RANBAXY-2013RR-71866

PATIENT
  Age: 86 Year
  Sex: Female

DRUGS (4)
  1. DONEPEZIL [Suspect]
     Indication: DEMENTIA ALZHEIMER^S TYPE
     Dosage: 5 MG/DAY
     Route: 065
  2. AMLODIPINE [Concomitant]
     Indication: HYPERTENSION
     Dosage: 5 MG/DAY
     Route: 065
  3. BISOPROLOL [Concomitant]
     Indication: ATRIAL FIBRILLATION
     Dosage: 0.625 MG/DAY
     Route: 065
  4. METILDIGOXIN [Concomitant]
     Indication: ATRIAL FIBRILLATION
     Dosage: 0.05 MG/DAY
     Route: 065

REACTIONS (2)
  - Torsade de pointes [Recovered/Resolved]
  - Syncope [Recovered/Resolved]
